FAERS Safety Report 4736995-6 (Version None)
Quarter: 2005Q3

REPORT INFORMATION
  Report Type: 
  Country: None (occurrence: None)
  Receive Date: 20050804
  Receipt Date: 20050718
  Transmission Date: 20060218
  Serious: Yes (Hospitalization, Other)
  Sender: FDA-Public Use
  Company Number: 2005-01599

PATIENT
  Age: 63 Year
  Sex: Male

DRUGS (12)
  1. INTEGRILIN [Suspect]
     Indication: ACUTE MYOCARDIAL INFARCTION
     Dosage: INTRAVENOUS
     Route: 042
     Dates: start: 20050120, end: 20050120
  2. ACETYLSALICYLIC ACID SRT [Suspect]
     Dates: start: 20000101
  3. PLAVIX [Suspect]
     Dates: start: 20050120, end: 20050120
  4. HEPARIN [Suspect]
     Dosage: 5000.00 IU, INTRAVENOUS
     Route: 042
     Dates: start: 20050120
  5. FUROSEMIDE (FUROSEMIDE) [Concomitant]
  6. RAMIPRIL [Concomitant]
  7. SOTAHEXAL (SOTALOL HYDROCHLORIDE) [Concomitant]
  8. NORVASC [Concomitant]
  9. AQUAPHOR TABLET (XIPAMIDE) [Concomitant]
  10. TIOTROPIUM BROMIDE ^SPIRIVA^ (TIOTROPIUM BROMIDE) [Concomitant]
  11. ATORVASTATIN CALCIUM [Concomitant]
  12. CONTRAST MEDIA [Concomitant]

REACTIONS (1)
  - THROMBOCYTOPENIC PURPURA [None]
